FAERS Safety Report 17209172 (Version 2)
Quarter: 2020Q1

REPORT INFORMATION
  Report Type: Spontaneous
  Country: NL (occurrence: NL)
  Receive Date: 20191227
  Receipt Date: 20200210
  Transmission Date: 20200409
  Serious: Yes (Hospitalization, Disabling)
  Sender: FDA-Public Use
  Company Number: NVSC2019NL079330

PATIENT
  Age: 40 Year
  Sex: Female

DRUGS (2)
  1. MACROGOL [Concomitant]
     Active Substance: POLYETHYLENE GLYCOLS
     Indication: PRODUCT USED FOR UNKNOWN INDICATION
     Dosage: UNK
     Route: 065
  2. GILENYA [Suspect]
     Active Substance: FINGOLIMOD HYDROCHLORIDE
     Indication: MULTIPLE SCLEROSIS
     Dosage: 0.5 MG
     Route: 048
     Dates: start: 201310, end: 20191114

REACTIONS (9)
  - Lymphocyte count increased [Unknown]
  - Rebound effect [Unknown]
  - Multiple sclerosis [Unknown]
  - Multiple sclerosis relapse [Recovered/Resolved with Sequelae]
  - Taste disorder [Recovered/Resolved with Sequelae]
  - Balance disorder [Unknown]
  - Multiple sclerosis relapse [Recovered/Resolved with Sequelae]
  - Drug ineffective [Unknown]
  - Gadolinium deposition disease [Unknown]

NARRATIVE: CASE EVENT DATE: 201902
